FAERS Safety Report 4694218-0 (Version None)
Quarter: 2005Q2

REPORT INFORMATION
  Report Type: 
  Country: None (occurrence: None)
  Receive Date: 20050616
  Receipt Date: 20050616
  Transmission Date: 20051028
  Serious: No
  Sender: FDA-Public Use
  Company Number: None

PATIENT
  Age: 48 Year
  Sex: Female
  Weight: 74.3899 kg

DRUGS (5)
  1. HERCEPTIN [Suspect]
     Indication: BREAST CANCER
     Dosage: WEEKLY IV
     Route: 042
     Dates: start: 20050602
  2. HERCEPTIN [Suspect]
  3. BENADRYL [Concomitant]
  4. DECADRON [Concomitant]
  5. MORPHINE [Concomitant]

REACTIONS (4)
  - BACK PAIN [None]
  - CHILLS [None]
  - DYSPNOEA [None]
  - INFUSION RELATED REACTION [None]
